FAERS Safety Report 9471260 (Version 2)
Quarter: 2014Q2

REPORT INFORMATION
  Report Type: Spontaneous
  Country: US (occurrence: US)
  Receive Date: 20130822
  Receipt Date: 20140428
  Transmission Date: 20141212
  Serious: Yes (Other)
  Sender: FDA-Public Use
  Company Number: US-BAYER-2013-101227

PATIENT
  Age: 46 Year
  Sex: Female
  Weight: 76.19 kg

DRUGS (6)
  1. YASMIN [Suspect]
     Dosage: UNK
     Dates: start: 2005, end: 2012
  2. YAZ [Suspect]
     Dosage: UNK
     Dates: start: 2005, end: 2012
  3. HYDROCHLOROTHIAZIDE [Concomitant]
     Dosage: UNK
     Dates: start: 2005
  4. PAXIL [Concomitant]
     Dosage: UNK
     Dates: start: 2010
  5. ADVIL [Concomitant]
     Indication: PREMENSTRUAL SYNDROME
  6. IBUPROFEN [Concomitant]
     Indication: PREMENSTRUAL SYNDROME

REACTIONS (5)
  - Gallbladder disorder [None]
  - Injury [None]
  - Pain [None]
  - Fear of disease [None]
  - Pain [None]
